FAERS Safety Report 16929791 (Version 1)
Quarter: 2019Q4

REPORT INFORMATION
  Report Type: Spontaneous
  Country: GB (occurrence: GB)
  Receive Date: 20191017
  Receipt Date: 20191017
  Transmission Date: 20200122
  Serious: Yes (Other)
  Sender: FDA-Public Use
  Company Number: GB-PFIZER INC-2019447283

PATIENT
  Age: 64 Year
  Sex: Male
  Weight: 88.9 kg

DRUGS (1)
  1. DOXYCYCLINE MONOHYDRATE [Suspect]
     Active Substance: DOXYCYCLINE
     Indication: RASH
     Dosage: 100 MG, 1X/DAY
     Route: 048
     Dates: start: 20190917, end: 20190921

REACTIONS (4)
  - Visual impairment [Not Recovered/Not Resolved]
  - Product use in unapproved indication [Unknown]
  - Off label use [Unknown]
  - Haematochezia [Not Recovered/Not Resolved]
